FAERS Safety Report 4796672-2 (Version None)
Quarter: 2005Q4

REPORT INFORMATION
  Report Type: 
  Country: None (occurrence: None)
  Receive Date: 20051006
  Receipt Date: 20051006
  Transmission Date: 20060501
  Serious: Yes (Hospitalization)
  Sender: FDA-Public Use
  Company Number: None

PATIENT
  Age: 46 Year
  Sex: Female
  Weight: 44.6 kg

DRUGS (6)
  1. DESMOPRESSIN [Suspect]
     Indication: DIABETES INSIPIDUS
     Dosage: 10 MCG INTRANASALLY BID
     Route: 045
     Dates: end: 20041127
  2. ONDANSETRON [Concomitant]
  3. BUTALBITAL [Concomitant]
  4. APAP TAB [Concomitant]
  5. CAFFEINE [Concomitant]
  6. APAP/DIPHENHYDRAMINE [Concomitant]

REACTIONS (5)
  - BLOOD SODIUM DECREASED [None]
  - INCORRECT DOSE ADMINISTERED [None]
  - MALAISE [None]
  - NAUSEA [None]
  - VOMITING [None]
